FAERS Safety Report 5604022-4 (Version None)
Quarter: 2008Q1

REPORT INFORMATION
  Report Type: 
  Country: None (occurrence: None)
  Receive Date: 20080123
  Receipt Date: 20080123
  Transmission Date: 20080703
  Serious: Yes (Hospitalization)
  Sender: FDA-Public Use
  Company Number: None

PATIENT
  Age: 63 Year
  Sex: Male
  Weight: 84.8226 kg

DRUGS (2)
  1. ZETIA [Suspect]
     Dosage: ONCE DAILY
     Dates: start: 20031010, end: 20080115
  2. LIPITOR [Suspect]
     Dates: start: 19901210, end: 20080115

REACTIONS (3)
  - BILIARY CIRRHOSIS PRIMARY [None]
  - CAROTID ARTERY OCCLUSION [None]
  - POLYP [None]
